FAERS Safety Report 4781384-1 (Version None)
Quarter: 2005Q3

REPORT INFORMATION
  Report Type: 
  Country: None (occurrence: None)
  Receive Date: 20050928
  Receipt Date: 20050627
  Transmission Date: 20060218
  Serious: Yes (Other)
  Sender: FDA-Public Use
  Company Number: US-BRISTOL-MYERS SQUIBB COMPANY-13016845

PATIENT
  Age: 65 Year
  Sex: Male
  Weight: 73 kg

DRUGS (5)
  1. BARACLUDE [Suspect]
     Indication: HEPATITIS B
     Route: 048
     Dates: start: 20050501
  2. DILTIAZEM HCL [Concomitant]
  3. RANITIDINE [Concomitant]
  4. COUMADIN [Concomitant]
  5. LEXAPRO [Concomitant]

REACTIONS (1)
  - LIVER FUNCTION TEST ABNORMAL [None]
